FAERS Safety Report 8336141 (Version 2)
Quarter: 2016Q2

REPORT INFORMATION
  Report Type: Report from Study
  Country: US (occurrence: US)
  Receive Date: 20120113
  Receipt Date: 20160419
  Transmission Date: 20160815
  Serious: Yes (Death)
  Sender: FDA-Public Use
  Company Number: US-ROCHE-1029061

PATIENT
  Age: 53 Year
  Sex: Female

DRUGS (5)
  1. VP-16 [Concomitant]
     Active Substance: ETOPOSIDE
     Route: 042
     Dates: start: 20100407
  2. AVASTIN [Suspect]
     Active Substance: BEVACIZUMAB
     Indication: LUNG NEOPLASM MALIGNANT
     Route: 042
     Dates: start: 20100406
  3. AVASTIN [Suspect]
     Active Substance: BEVACIZUMAB
     Indication: METASTASES TO NERVOUS SYSTEM
  4. CARBOPLATIN. [Concomitant]
     Active Substance: CARBOPLATIN
     Route: 042
     Dates: start: 20100406
  5. VP-16 [Concomitant]
     Active Substance: ETOPOSIDE
     Route: 042
     Dates: start: 20100406

REACTIONS (1)
  - Death [Fatal]

NARRATIVE: CASE EVENT DATE: 20100517
